FAERS Safety Report 5925800-8 (Version None)
Quarter: 2008Q4

REPORT INFORMATION
  Report Type: 
  Country: None (occurrence: None)
  Receive Date: 20081021
  Receipt Date: 20081010
  Transmission Date: 20090506
  Serious: Yes (Hospitalization)
  Sender: FDA-Public Use
  Company Number: US-JNJFOC-20081003343

PATIENT
  Sex: Female

DRUGS (6)
  1. ORTHO EVRA [Suspect]
     Indication: DRUG USE FOR UNKNOWN INDICATION
     Route: 062
  2. FLEXERIL [Concomitant]
  3. BACTRIM [Concomitant]
     Indication: URINARY TRACT INFECTION
  4. WELLBUTRIN [Concomitant]
  5. ACCOLATE [Concomitant]
  6. ALLERGY SHOTS [Concomitant]

REACTIONS (1)
  - LACUNAR INFARCTION [None]
